FAERS Safety Report 16846632 (Version 2)
Quarter: 2019Q4

REPORT INFORMATION
  Report Type: Spontaneous
  Country: US (occurrence: US)
  Receive Date: 20190924
  Receipt Date: 20191108
  Transmission Date: 20200122
  Serious: Yes (Other)
  Sender: FDA-Public Use
  Company Number: US-ALEXION-A201914129

PATIENT
  Age: 13 Year
  Sex: Male

DRUGS (3)
  1. KANUMA [Suspect]
     Active Substance: SEBELIPASE ALFA
     Dosage: 1MG/KG
     Route: 042
  2. KANUMA [Suspect]
     Active Substance: SEBELIPASE ALFA
     Indication: LYSOSOMAL ACID LIPASE DEFICIENCY
     Dosage: 1MG/KG
     Route: 042
  3. KANUMA [Suspect]
     Active Substance: SEBELIPASE ALFA
     Dosage: 0.35MG/KG
     Route: 042

REACTIONS (2)
  - Hypersensitivity [Recovered/Resolved]
  - Anaphylactic reaction [Recovered/Resolved]
